FAERS Safety Report 5922723-5 (Version None)
Quarter: 2008Q4

REPORT INFORMATION
  Report Type: 
  Country: None (occurrence: None)
  Receive Date: 20081017
  Receipt Date: 20081009
  Transmission Date: 20090506
  Serious: Yes (Other)
  Sender: FDA-Public Use
  Company Number: FR-ELI_LILLY_AND_COMPANY-FR200810002233

PATIENT
  Age: 42 Year
  Sex: Male

DRUGS (3)
  1. ZYPREXA [Suspect]
     Indication: DEPRESSION
     Dosage: 20 MG, DAILY (1/D)
     Route: 048
  2. ZYPREXA [Suspect]
     Dosage: UNK, UNK
     Route: 065
     Dates: start: 20080101
  3. LOXAPINE HCL [Concomitant]
     Indication: DEPRESSION

REACTIONS (1)
  - HEPATOCELLULAR INJURY [None]
